FAERS Safety Report 5676558-1 (Version None)
Quarter: 2008Q1

REPORT INFORMATION
  Report Type: 
  Country: None (occurrence: None)
  Receive Date: 20080321
  Receipt Date: 20080321
  Transmission Date: 20080703
  Serious: Yes (Other)
  Sender: FDA-Public Use
  Company Number: None

PATIENT
  Age: 6 Year
  Sex: Male

DRUGS (1)
  1. TAMIFLU [Suspect]
     Dosage: 5CC PO BID 3 DOSES
     Route: 048
     Dates: start: 20080308, end: 20080309

REACTIONS (5)
  - ABNORMAL BEHAVIOUR [None]
  - ANGER [None]
  - DIARRHOEA [None]
  - MUSCLE SPASMS [None]
  - VOMITING [None]
